FAERS Safety Report 20968534 (Version 1)
Quarter: 2022Q2

REPORT INFORMATION
  Report Type: Spontaneous
  Country: FR (occurrence: FR)
  Receive Date: 20220616
  Receipt Date: 20220616
  Transmission Date: 20220721
  Serious: Yes (Death)
  Sender: FDA-Public Use
  Company Number: FR-PFIZER INC-PV202200002912

PATIENT
  Age: 82 Year
  Sex: Male
  Weight: 52 kg

DRUGS (1)
  1. VYNDAQEL [Suspect]
     Active Substance: TAFAMIDIS MEGLUMINE
     Indication: Cardiac amyloidosis
     Dosage: 20 MG, DAILY
     Dates: end: 20190402

REACTIONS (1)
  - Death [Fatal]

NARRATIVE: CASE EVENT DATE: 20190401
